FAERS Safety Report 6288129-7 (Version None)
Quarter: 2009Q3

REPORT INFORMATION
  Report Type: 
  Country: None (occurrence: None)
  Receive Date: 20090729
  Receipt Date: 20090427
  Transmission Date: 20100115
  Serious: No
  Sender: FDA-Public Use
  Company Number: A0782601A

PATIENT
  Sex: Female

DRUGS (6)
  1. RANITIDINE [Suspect]
     Indication: DRUG USE FOR UNKNOWN INDICATION
  2. ZYRTEC [Suspect]
     Indication: DRUG USE FOR UNKNOWN INDICATION
  3. PREDNISONE [Suspect]
     Indication: DRUG USE FOR UNKNOWN INDICATION
  4. BENADRYL [Suspect]
     Indication: DRUG USE FOR UNKNOWN INDICATION
  5. XYZAL [Suspect]
     Indication: DRUG USE FOR UNKNOWN INDICATION
  6. HYDROXYZINE [Suspect]
     Indication: DRUG USE FOR UNKNOWN INDICATION

REACTIONS (4)
  - ABDOMINAL DISCOMFORT [None]
  - DRUG INEFFECTIVE [None]
  - EYELID OEDEMA [None]
  - URTICARIA [None]
